FAERS Safety Report 9663073 (Version 2)
Quarter: 2013Q4

REPORT INFORMATION
  Report Type: Spontaneous
  Country: US (occurrence: US)
  Receive Date: 20131031
  Receipt Date: 20131202
  Transmission Date: 20140711
  Serious: No
  Sender: FDA-Public Use
  Company Number: US-009507513-1310USA009742

PATIENT
  Age: 24 Year
  Sex: Male

DRUGS (1)
  1. PEGINTRON [Suspect]
     Indication: HEPATITIS C
     Dosage: 150 MICROGRAM, UNK
     Dates: start: 20131009

REACTIONS (5)
  - Incorrect product storage [Unknown]
  - Incorrect product storage [Unknown]
  - Incorrect product storage [Unknown]
  - Drug dose omission [Unknown]
  - No adverse event [Unknown]
